FAERS Safety Report 18926437 (Version 2)
Quarter: 2021Q1

REPORT INFORMATION
  Report Type: Spontaneous
  Country: FR (occurrence: FR)
  Receive Date: 20210223
  Receipt Date: 20210310
  Transmission Date: 20210420
  Serious: Yes (Hospitalization, Other)
  Sender: FDA-Public Use
  Company Number: FR-UCBSA-2021007556

PATIENT
  Age: 103 Year
  Sex: Female

DRUGS (21)
  1. VIMPAT [Suspect]
     Active Substance: LACOSAMIDE
     Indication: PRODUCT ADMINISTRATION ERROR
     Dosage: 1 DOSAGE FORM, ONE TIME DOSE
     Route: 048
     Dates: start: 20201217, end: 20201217
  2. MACROGOL [Suspect]
     Active Substance: POLYETHYLENE GLYCOLS
     Indication: PRODUCT USED FOR UNKNOWN INDICATION
  3. RAMIPRIL. [Suspect]
     Active Substance: RAMIPRIL
     Indication: PRODUCT ADMINISTRATION ERROR
     Route: 048
     Dates: start: 20201217, end: 20201217
  4. FURADANTINE [Suspect]
     Active Substance: NITROFURANTOIN
     Indication: PRODUCT ADMINISTRATION ERROR
     Route: 048
     Dates: start: 20201217, end: 20201217
  5. ZYMAD [Suspect]
     Active Substance: CHOLECALCIFEROL
     Indication: PRODUCT ADMINISTRATION ERROR
     Dosage: 1 DOSAGE FORM, ONE TIME DOSE
     Route: 048
     Dates: start: 20201217, end: 20201217
  6. BISOCE [Suspect]
     Active Substance: BISOPROLOL
     Indication: PRODUCT ADMINISTRATION ERROR
     Dosage: 1 DOSAGE FORM, ONE TIME DOSE
     Route: 048
     Dates: start: 20201217, end: 20201217
  7. FUMAFER [Suspect]
     Active Substance: FERROUS FUMARATE
     Indication: PRODUCT ADMINISTRATION ERROR
     Dosage: 1 DOSAGE FORM, ONE TIME DOSE
     Route: 048
     Dates: start: 20201217, end: 20201217
  8. FUMAFER [Suspect]
     Active Substance: FERROUS FUMARATE
     Indication: PRODUCT USED FOR UNKNOWN INDICATION
  9. DOLIPRANE [Suspect]
     Active Substance: ACETAMINOPHEN
     Indication: PRODUCT ADMINISTRATION ERROR
     Route: 048
     Dates: start: 20201217, end: 20201217
  10. DOLIPRANE [Suspect]
     Active Substance: ACETAMINOPHEN
     Indication: PRODUCT USED FOR UNKNOWN INDICATION
  11. FOLIC ACID. [Suspect]
     Active Substance: FOLIC ACID
     Indication: PRODUCT USED FOR UNKNOWN INDICATION
  12. RAMIPRIL. [Suspect]
     Active Substance: RAMIPRIL
     Indication: PRODUCT USED FOR UNKNOWN INDICATION
  13. DIFFU K [Suspect]
     Active Substance: POTASSIUM CHLORIDE
     Indication: PRODUCT ADMINISTRATION ERROR
     Dosage: 1 DOSAGE FORM, ONE TIME DOSE
     Route: 048
     Dates: start: 20201217, end: 20201217
  14. FURADANTINE [Suspect]
     Active Substance: NITROFURANTOIN
     Indication: PRODUCT USED FOR UNKNOWN INDICATION
  15. FOLIC ACID. [Suspect]
     Active Substance: FOLIC ACID
     Indication: PRODUCT ADMINISTRATION ERROR
     Dosage: 5 MILLIGRAM, ONE TIME DOSE
     Route: 048
     Dates: start: 20201217, end: 20201217
  16. DIFFU K [Suspect]
     Active Substance: POTASSIUM CHLORIDE
     Indication: PRODUCT USED FOR UNKNOWN INDICATION
  17. BUSCOPAN [Suspect]
     Active Substance: BUTYLSCOPOLAMINE BROMIDE
     Indication: PRODUCT USED FOR UNKNOWN INDICATION
     Dosage: UNK
     Route: 048
     Dates: start: 20201217, end: 20201217
  18. MACROGOL [Suspect]
     Active Substance: POLYETHYLENE GLYCOLS
     Indication: PRODUCT ADMINISTRATION ERROR
     Dosage: 1 DOSAGE FORM, ONE TIME DOSE
     Route: 048
     Dates: start: 20201217, end: 20201217
  19. VIMPAT [Suspect]
     Active Substance: LACOSAMIDE
     Indication: PRODUCT USED FOR UNKNOWN INDICATION
  20. ZYMAD [Suspect]
     Active Substance: CHOLECALCIFEROL
     Indication: PRODUCT USED FOR UNKNOWN INDICATION
  21. BISOCE [Suspect]
     Active Substance: BISOPROLOL
     Indication: PRODUCT USED FOR UNKNOWN INDICATION

REACTIONS (7)
  - Malaise [Recovered/Resolved]
  - Hypotension [Recovered/Resolved]
  - Bradycardia [Recovered/Resolved]
  - Product administration error [Unknown]
  - Wrong patient received product [Unknown]
  - Loss of consciousness [Recovered/Resolved]
  - Shock [Recovered/Resolved]

NARRATIVE: CASE EVENT DATE: 20201217
